FAERS Safety Report 9860528 (Version 2)
Quarter: 2014Q1

REPORT INFORMATION
  Report Type: Spontaneous
  Country: US (occurrence: US)
  Receive Date: 20140202
  Receipt Date: 20140311
  Transmission Date: 20141002
  Serious: Yes (Other)
  Sender: FDA-Public Use
  Company Number: US-TEVA-459858USA

PATIENT
  Sex: Female

DRUGS (1)
  1. NUVIGIL [Suspect]

REACTIONS (1)
  - Suicidal ideation [Unknown]
